FAERS Safety Report 25013127 (Version 1)
Quarter: 2025Q1

REPORT INFORMATION
  Report Type: Spontaneous
  Country: US (occurrence: None)
  Receive Date: 20250225
  Receipt Date: 20250225
  Transmission Date: 20250409
  Serious: Yes (Hospitalization, Disabling)
  Sender: FDA-CTU
  Company Number: None

PATIENT
  Age: 55 Year
  Sex: Male
  Weight: 99 kg

DRUGS (4)
  1. PHENTERMINE [Suspect]
     Active Substance: PHENTERMINE
     Indication: Asthenia
     Dosage: FREQUENCY : DAILY;?
     Route: 048
     Dates: start: 20230906, end: 20250220
  2. PHENDIMETRAZINE [Suspect]
     Active Substance: PHENDIMETRAZINE
     Indication: Asthenia
     Dosage: FREQUENCY : DAILY;?
     Route: 048
     Dates: start: 20230906, end: 20250220
  3. TESTOSTERONE [Concomitant]
     Active Substance: TESTOSTERONE
     Dates: start: 20230207
  4. oral iron [Concomitant]

REACTIONS (1)
  - Cardiac failure [None]

NARRATIVE: CASE EVENT DATE: 20250224
